FAERS Safety Report 7769298-6 (Version None)
Quarter: 2011Q3

REPORT INFORMATION
  Report Type: 
  Country: None (occurrence: None)
  Receive Date: 20110922
  Receipt Date: 20110921
  Transmission Date: 20111222
  Serious: Yes (Other)
  Sender: FDA-Public Use
  Company Number: US-GLAXOSMITHKLINE-A0945457A

PATIENT
  Age: 33 Year
  Sex: Female

DRUGS (1)
  1. ALLI [Suspect]
     Indication: WEIGHT LOSS DIET
     Route: 048

REACTIONS (5)
  - PROCTALGIA [None]
  - RECTAL DISCHARGE [None]
  - HAEMORRHOIDS [None]
  - HAEMATOCHEZIA [None]
  - ANORECTAL DISCOMFORT [None]
